FAERS Safety Report 10241406 (Version 1)
Quarter: 2014Q2

REPORT INFORMATION
  Report Type: Spontaneous
  Country: US (occurrence: US)
  Receive Date: 20140617
  Receipt Date: 20140617
  Transmission Date: 20141212
  Serious: No
  Sender: FDA-Public Use
  Company Number: US-PFIZER INC-2014162613

PATIENT
  Sex: Female

DRUGS (1)
  1. CHILDREN^S ADVIL [Suspect]
     Indication: PYREXIA
     Dosage: 5 ML, ONCE
     Dates: start: 20140611

REACTIONS (1)
  - Urticaria [Not Recovered/Not Resolved]
